FAERS Safety Report 25387423 (Version 1)
Quarter: 2025Q2

REPORT INFORMATION
  Report Type: Spontaneous
  Country: GB (occurrence: GB)
  Receive Date: 20250602
  Receipt Date: 20250602
  Transmission Date: 20250716
  Serious: Yes (Disabling, Other)
  Sender: UCB
  Company Number: None

PATIENT
  Age: 55 Year
  Sex: Male
  Weight: 120 kg

DRUGS (9)
  1. BRIVARACETAM [Suspect]
     Active Substance: BRIVARACETAM
     Indication: Partial seizures
     Dosage: 25MG TWICE A DAY MORNING AND EVENING
     Dates: start: 20250228
  2. VALPROATE SODIUM [Concomitant]
     Active Substance: VALPROATE SODIUM
     Indication: Partial seizures
     Dates: start: 1985
  3. CLONAZEPAM [Concomitant]
     Active Substance: CLONAZEPAM
     Indication: Partial seizures
     Dates: start: 1998
  4. ACETAMINOPHEN\CODEINE PHOSPHATE [Concomitant]
     Active Substance: ACETAMINOPHEN\CODEINE PHOSPHATE
     Indication: Arthritis
     Dates: start: 2014
  5. NAPROXEN [Concomitant]
     Active Substance: NAPROXEN
     Indication: Arthritis
     Dates: start: 2020
  6. RAMIPRIL [Concomitant]
     Active Substance: RAMIPRIL
     Indication: Diabetic nephropathy
     Dates: start: 2014
  7. OMEPRAZOLE [Concomitant]
     Active Substance: OMEPRAZOLE
     Indication: Prophylaxis
     Dates: start: 2022
  8. ATORVASTATIN [Concomitant]
     Active Substance: ATORVASTATIN
     Indication: Blood cholesterol increased
     Dates: start: 2018
  9. HUMULIN L [Concomitant]
     Active Substance: INSULIN HUMAN
     Indication: Type 2 diabetes mellitus

REACTIONS (1)
  - Homicidal ideation [Recovered/Resolved]

NARRATIVE: CASE EVENT DATE: 20250401
